FAERS Safety Report 9904524 (Version 1)
Quarter: 2014Q1

REPORT INFORMATION
  Report Type: Spontaneous
  Country: GB (occurrence: GB)
  Receive Date: 20140218
  Receipt Date: 20140218
  Transmission Date: 20141002
  Serious: Yes (Hospitalization, Other)
  Sender: FDA-Public Use
  Company Number: GB-JNJFOC-20140208392

PATIENT
  Age: 21 Year
  Sex: Male

DRUGS (2)
  1. XEPLION [Suspect]
     Indication: BIPOLAR DISORDER
     Route: 030
     Dates: start: 201304
  2. XEPLION [Suspect]
     Indication: BIPOLAR DISORDER
     Route: 030

REACTIONS (2)
  - Hospitalisation [Unknown]
  - Condition aggravated [Unknown]
